FAERS Safety Report 5194027-2 (Version None)
Quarter: 2006Q4

REPORT INFORMATION
  Report Type: 
  Country: None (occurrence: None)
  Receive Date: 20061222
  Receipt Date: 20060907
  Transmission Date: 20070319
  Serious: No
  Sender: FDA-Public Use
  Company Number: 2006IP000050

PATIENT
  Age: 76 Year
  Sex: Male

DRUGS (2)
  1. VITRASE [Suspect]
     Indication: VITREOUS FLOATERS
     Dosage: 1X; IVT
     Route: 042
     Dates: start: 20060804, end: 20060804
  2. ASPIRIN [Concomitant]

REACTIONS (3)
  - POST PROCEDURAL COMPLICATION [None]
  - RETINAL DETACHMENT [None]
  - VISUAL ACUITY REDUCED [None]
